FAERS Safety Report 16693389 (Version 1)
Quarter: 2019Q3

REPORT INFORMATION
  Report Type: Spontaneous
  Country: US (occurrence: US)
  Receive Date: 20190812
  Receipt Date: 20190812
  Transmission Date: 20191004
  Serious: No
  Sender: FDA-Public Use
  Company Number: US-AMNEAL PHARMACEUTICALS-2018AMN00928

PATIENT
  Age: 40 Year
  Sex: Female

DRUGS (2)
  1. ACYCLOVIR. [Suspect]
     Active Substance: ACYCLOVIR
     Indication: ERYTHEMA
  2. ACYCLOVIR. [Suspect]
     Active Substance: ACYCLOVIR
     Indication: SKIN IRRITATION
     Dosage: UNK UNK, 3X/DAY (LIKE A LITTLE)
     Route: 061
     Dates: start: 20181125, end: 20181128

REACTIONS (2)
  - Pruritus [Not Recovered/Not Resolved]
  - Drug ineffective for unapproved indication [Unknown]

NARRATIVE: CASE EVENT DATE: 20181127
